FAERS Safety Report 25690623 (Version 1)
Quarter: 2025Q3

REPORT INFORMATION
  Report Type: Other
  Country: US (occurrence: US)
  Receive Date: 20250818
  Receipt Date: 20250818
  Transmission Date: 20251021
  Serious: Yes (Life-Threatening, Hospitalization, Other)
  Sender: COREPHARMA LLC
  Company Number: US-CorePharma LLC-2182695

PATIENT
  Age: 48 Year
  Sex: Female

DRUGS (8)
  1. LISINOPRIL [Suspect]
     Active Substance: LISINOPRIL
     Indication: Product used for unknown indication
  2. AMLODIPINE [Interacting]
     Active Substance: AMLODIPINE BESYLATE
  3. KETAMINE [Interacting]
     Active Substance: KETAMINE
  4. HYDROXYZINE [Interacting]
     Active Substance: HYDROXYZINE HYDROCHLORIDE
  5. TRAZODONE [Interacting]
     Active Substance: TRAZODONE HYDROCHLORIDE
  6. BREXPIPRAZOLE [Interacting]
     Active Substance: BREXPIPRAZOLE
  7. CARIPRAZINE [Interacting]
     Active Substance: CARIPRAZINE
  8. VENLAFAXINE [Interacting]
     Active Substance: VENLAFAXINE HYDROCHLORIDE

REACTIONS (4)
  - Distributive shock [Unknown]
  - Intentional overdose [Unknown]
  - Drug interaction [Unknown]
  - Serotonin syndrome [Recovered/Resolved]
